FAERS Safety Report 23965749 (Version 2)
Quarter: 2024Q2

REPORT INFORMATION
  Report Type: Spontaneous
  Country: US (occurrence: None)
  Receive Date: 20240612
  Receipt Date: 20240624
  Transmission Date: 20240716
  Serious: No
  Sender: FDA-Public Use
  Company Number: 2024A134329

PATIENT
  Age: 81 Year
  Sex: Female
  Weight: 65.8 kg

DRUGS (3)
  1. FARXIGA [Suspect]
     Active Substance: DAPAGLIFLOZIN PROPANEDIOL
     Indication: Cardiac failure
     Route: 048
  2. FARXIGA [Suspect]
     Active Substance: DAPAGLIFLOZIN PROPANEDIOL
     Indication: Cardiac failure
     Route: 048
     Dates: start: 20240413, end: 20240608
  3. JARDIANCE [Suspect]
     Active Substance: EMPAGLIFLOZIN
     Indication: Cardiac failure
     Route: 048

REACTIONS (4)
  - Overdose [Unknown]
  - Skin exfoliation [Recovering/Resolving]
  - Vulvovaginal pruritus [Unknown]
  - Vulvovaginal discomfort [Unknown]
